FAERS Safety Report 17196968 (Version 1)
Quarter: 2019Q4

REPORT INFORMATION
  Report Type: Spontaneous
  Country: US (occurrence: US)
  Receive Date: 20191224
  Receipt Date: 20191224
  Transmission Date: 20200122
  Serious: No
  Sender: FDA-Public Use
  Company Number: US-GLENMARK PHARMACEUTICALS-2019GMK040961

PATIENT

DRUGS (1)
  1. CICLOPIROX OLAMINE CREAM USP, 0.77% [Suspect]
     Active Substance: CICLOPIROX OLAMINE
     Indication: PSORIASIS
     Dosage: UNK
     Route: 061
     Dates: start: 2019, end: 2019

REACTIONS (1)
  - Drug ineffective for unapproved indication [Unknown]

NARRATIVE: CASE EVENT DATE: 2019
